FAERS Safety Report 10418893 (Version 3)
Quarter: 2015Q1

REPORT INFORMATION
  Report Type: Spontaneous
  Country: US (occurrence: None)
  Receive Date: 20140625
  Receipt Date: 20150129
  Transmission Date: 20150720
  Serious: No
  Sender: FDA-Public Use
  Company Number: A-US2014-96792

PATIENT
  Age: 63 Year
  Sex: Female

DRUGS (3)
  1. ADCIRCA [Concomitant]
     Active Substance: TADALAFIL
  2. OPSUMIT [Suspect]
     Active Substance: MACITENTAN
     Indication: COR PULMONALE CHRONIC
     Route: 048
     Dates: start: 20140318
  3. TYVASO (TREPROSTINIL SODIUM) [Concomitant]

REACTIONS (8)
  - Nausea [None]
  - Hypertension [None]
  - Lethargy [None]
  - Abdominal pain upper [None]
  - Vertigo [None]
  - Tendonitis [None]
  - Blood sodium decreased [None]
  - Dizziness [None]

NARRATIVE: CASE EVENT DATE: 20140326
